FAERS Safety Report 7541400-0 (Version None)
Quarter: 2011Q2

REPORT INFORMATION
  Report Type: 
  Country: None (occurrence: None)
  Receive Date: 20110613
  Receipt Date: 20110606
  Transmission Date: 20111010
  Serious: No
  Sender: FDA-Public Use
  Company Number: US-BIOGENIDEC-2011BI004103

PATIENT
  Sex: Female

DRUGS (1)
  1. TYSABRI [Suspect]
     Indication: MULTIPLE SCLEROSIS
     Route: 042
     Dates: start: 20070713

REACTIONS (6)
  - ASTHENIA [None]
  - PNEUMONIA [None]
  - BRONCHITIS [None]
  - MEMORY IMPAIRMENT [None]
  - TEMPERATURE INTOLERANCE [None]
  - NAUSEA [None]
